FAERS Safety Report 12298356 (Version 2)
Quarter: 2016Q3

REPORT INFORMATION
  Report Type: Report from Study
  Country: ES (occurrence: ES)
  Receive Date: 20160423
  Receipt Date: 20160713
  Transmission Date: 20161109
  Serious: Yes (Hospitalization)
  Sender: FDA-Public Use
  Company Number: ES-AMGEN-ESPNI2016049997

PATIENT
  Age: 70 Year
  Sex: Male

DRUGS (2)
  1. DEXAMETHASONE. [Concomitant]
     Active Substance: DEXAMETHASONE
  2. BLINATUMOMAB [Suspect]
     Active Substance: BLINATUMOMAB
     Indication: PRODUCT USED FOR UNKNOWN INDICATION
     Dosage: 28 MG/D, UNK
     Route: 042

REACTIONS (2)
  - Incorrect drug administration rate [Unknown]
  - Pyrexia [Recovered/Resolved]

NARRATIVE: CASE EVENT DATE: 201604
